FAERS Safety Report 24524085 (Version 1)
Quarter: 2024Q4

REPORT INFORMATION
  Report Type: Spontaneous
  Country: US (occurrence: US)
  Receive Date: 20241018
  Receipt Date: 20241018
  Transmission Date: 20250114
  Serious: No
  Sender: SANOFI AVENTIS
  Company Number: US-SA-2024SA291104

PATIENT
  Age: 35 Year
  Sex: Female

DRUGS (4)
  1. DUPIXENT [Suspect]
     Active Substance: DUPILUMAB
     Indication: Eczema
     Dosage: 600 MG, 1X
     Route: 058
     Dates: start: 202407, end: 202407
  2. DUPIXENT [Suspect]
     Active Substance: DUPILUMAB
     Dosage: 300 MG, QOW
     Route: 058
     Dates: start: 2024
  3. TRULICITY [Suspect]
     Active Substance: DULAGLUTIDE
     Dosage: UNK
     Dates: start: 202408, end: 2024
  4. TRULICITY [Suspect]
     Active Substance: DULAGLUTIDE
     Dosage: UNK
     Dates: start: 2024

REACTIONS (4)
  - Nausea [Not Recovered/Not Resolved]
  - Feeding disorder [Recovering/Resolving]
  - Dizziness [Recovering/Resolving]
  - Off label use [Unknown]

NARRATIVE: CASE EVENT DATE: 20240101
